FAERS Safety Report 6064975-X (Version None)
Quarter: 2009Q1

REPORT INFORMATION
  Report Type: 
  Country: None (occurrence: None)
  Receive Date: 20090203
  Receipt Date: 20090203
  Transmission Date: 20090719
  Serious: Yes (Other)
  Sender: FDA-Public Use
  Company Number: None

PATIENT
  Sex: Female
  Weight: 52.1637 kg

DRUGS (4)
  1. FACTIVE [Suspect]
     Indication: SINUSITIS
     Dosage: I TABLET BY MOUTH A/DAY PO
     Route: 048
     Dates: start: 20090122, end: 20090129
  2. STEROID SHOT [Concomitant]
  3. XYZAL [Concomitant]
  4. MEDICAL DOSE PAC #1 [Concomitant]

REACTIONS (1)
  - RASH GENERALISED [None]
